FAERS Safety Report 19497994 (Version 4)
Quarter: 2021Q4

REPORT INFORMATION
  Report Type: Spontaneous
  Country: US (occurrence: US)
  Receive Date: 20210706
  Receipt Date: 20211221
  Transmission Date: 20220303
  Serious: Yes (Death, Other)
  Sender: FDA-Public Use
  Company Number: US-KARYOPHARM-2021KPT000769

PATIENT

DRUGS (24)
  1. XPOVIO [Suspect]
     Active Substance: SELINEXOR
     Indication: Plasma cell myeloma
     Dosage: 80 MG, WEEKLY
     Route: 048
     Dates: start: 20210526, end: 20211202
  2. ZYRTEC [Concomitant]
     Active Substance: CETIRIZINE HYDROCHLORIDE
     Indication: Product used for unknown indication
  3. GRANISETRON [Concomitant]
     Active Substance: GRANISETRON
     Indication: Product used for unknown indication
  4. GABAPENTIN [Concomitant]
     Active Substance: GABAPENTIN
     Indication: Product used for unknown indication
  5. CANNABIDIOL [Concomitant]
     Active Substance: CANNABIDIOL
     Indication: Product used for unknown indication
  6. ZOFRAN [Concomitant]
     Active Substance: ONDANSETRON HYDROCHLORIDE
     Indication: Product used for unknown indication
  7. OLANZAPINE [Concomitant]
     Active Substance: OLANZAPINE
     Indication: Product used for unknown indication
  8. ACETAMINOPHEN [Concomitant]
     Active Substance: ACETAMINOPHEN
  9. ACYCLOVIR [Concomitant]
     Active Substance: ACYCLOVIR
  10. APREPITANT [Concomitant]
     Active Substance: APREPITANT
  11. DEXAMETHASONE [Concomitant]
     Active Substance: DEXAMETHASONE
  12. CRESTOR [Concomitant]
     Active Substance: ROSUVASTATIN CALCIUM
  13. DIPHENHYDRAMINE [Concomitant]
     Active Substance: DIPHENHYDRAMINE
  14. FERROUS SULFATE [Concomitant]
     Active Substance: FERROUS SULFATE
  15. TAMSULOSIN HYDROCHLORIDE [Concomitant]
     Active Substance: TAMSULOSIN HYDROCHLORIDE
  16. FLONASE ALLERGY RELIEF [Concomitant]
     Active Substance: FLUTICASONE PROPIONATE
  17. FLUOROURACIL [Concomitant]
     Active Substance: FLUOROURACIL
  18. ISOSORBIDE MONONITRATE [Concomitant]
     Active Substance: ISOSORBIDE MONONITRATE
  19. LISINOPRIL [Concomitant]
     Active Substance: LISINOPRIL
  20. PANTOPRAZOLE [Concomitant]
     Active Substance: PANTOPRAZOLE
  21. PROSCAR [Concomitant]
     Active Substance: FINASTERIDE
  22. SOTALOL [Concomitant]
     Active Substance: SOTALOL
  23. XARELTO [Concomitant]
     Active Substance: RIVAROXABAN
  24. ZETIA [Concomitant]
     Active Substance: EZETIMIBE

REACTIONS (5)
  - Myocardial infarction [Fatal]
  - Mental impairment [Not Recovered/Not Resolved]
  - Taste disorder [Unknown]
  - Nausea [Unknown]
  - Fatigue [Unknown]

NARRATIVE: CASE EVENT DATE: 20210501
